FAERS Safety Report 9303230 (Version 2)
Quarter: 2013Q2

REPORT INFORMATION
  Report Type: Spontaneous
  Country: US (occurrence: US)
  Receive Date: 20130522
  Receipt Date: 20130607
  Transmission Date: 20140414
  Serious: No
  Sender: FDA-Public Use
  Company Number: US-PFIZER INC-2013156782

PATIENT
  Age: 77 Year
  Sex: Male

DRUGS (5)
  1. XELJANZ [Suspect]
     Indication: RHEUMATOID ARTHRITIS
     Dosage: 5 MG, 2X/DAY
     Route: 048
     Dates: start: 201301
  2. PREDNISONE [Concomitant]
     Dosage: 10 MG, UNK
  3. METHOTREXATE [Concomitant]
     Dosage: 2.5 MG, UNK
  4. LIPITOR [Concomitant]
     Dosage: 40 MG, UNK
  5. DIOVAN [Concomitant]
     Dosage: 80 MG, UNK

REACTIONS (2)
  - Pain [Unknown]
  - Fatigue [Unknown]
